FAERS Safety Report 12241823 (Version 7)
Quarter: 2019Q4

REPORT INFORMATION
  Report Type: Spontaneous
  Country: US (occurrence: US)
  Receive Date: 20160406
  Receipt Date: 20191011
  Transmission Date: 20200122
  Serious: Yes (Other)
  Sender: FDA-Public Use
  Company Number: US-PFIZER INC-2016192398

PATIENT
  Age: 54 Year
  Sex: Female
  Weight: 114 kg

DRUGS (20)
  1. GABAPENTIN. [Suspect]
     Active Substance: GABAPENTIN
     Indication: ARNOLD-CHIARI MALFORMATION
  2. METFORMIN HCL [Concomitant]
     Active Substance: METFORMIN HYDROCHLORIDE
     Indication: DIABETES MELLITUS
     Dosage: 500 MG, 2X/DAY
     Dates: start: 2006
  3. TRAMADOL HCL [Concomitant]
     Active Substance: TRAMADOL HYDROCHLORIDE
     Indication: PAIN
     Dosage: 50 MG, 3X/DAY
  4. CHLORTHALIDONE. [Concomitant]
     Active Substance: CHLORTHALIDONE
     Indication: FLUID RETENTION
     Dosage: 12.5 MG, 1X/DAY (IN THE MORNING)
     Route: 048
  5. CHLORTHALIDONE. [Concomitant]
     Active Substance: CHLORTHALIDONE
     Dosage: 25 MG, 1X/DAY
  6. POTASSIUM CHLORIDE. [Concomitant]
     Active Substance: POTASSIUM CHLORIDE
     Indication: MINERAL SUPPLEMENTATION
     Dosage: 20 MEQ, 1X/DAY (WITH FOOD)
     Route: 048
  7. GABAPENTIN. [Suspect]
     Active Substance: GABAPENTIN
     Indication: NEURALGIA
     Dosage: UNK
     Dates: start: 2006
  8. VOLTAREN [Concomitant]
     Active Substance: DICLOFENAC SODIUM
     Dosage: 1 %, UNK
     Route: 062
  9. VITAMIN D3 [Concomitant]
     Active Substance: CHOLECALCIFEROL
     Indication: VITAMIN SUPPLEMENTATION
     Dosage: UNK, WEEKLY
     Route: 048
     Dates: start: 20160204
  10. RALOXIFENE HCL [Concomitant]
     Active Substance: RALOXIFENE
     Dosage: 60 MG, 1X/DAY
     Route: 048
  11. METROGEL [Concomitant]
     Active Substance: METRONIDAZOLE
     Dosage: 1 %, 1X/DAY
     Route: 061
  12. OMEPRAZOLE. [Concomitant]
     Active Substance: OMEPRAZOLE
     Indication: DYSPEPSIA
     Dosage: 20 MG, 1X/DAY (AT BEDTIME)
     Route: 048
  13. VITAMIN D3 [Concomitant]
     Active Substance: CHOLECALCIFEROL
     Dosage: 50000 IU, WEEKLY (50,000 UNITS ONCE A WEEK)
     Dates: start: 20160404
  14. ALPRAZOLAM. [Concomitant]
     Active Substance: ALPRAZOLAM
     Indication: ANXIETY
     Dosage: 0.25 MG, AS NEEDED (EVERY 8 TO 12 HOURS)
     Dates: start: 2011
  15. SIMVASTATIN. [Concomitant]
     Active Substance: SIMVASTATIN
     Indication: BLOOD CHOLESTEROL ABNORMAL
     Dosage: 40 MG, 1X/DAY
     Route: 048
  16. ZETIA [Concomitant]
     Active Substance: EZETIMIBE
     Indication: BLOOD CHOLESTEROL ABNORMAL
     Dosage: 10 MG, 1X/DAY (AT BEDTIME)
     Route: 048
  17. DULOXETINE HCL [Concomitant]
     Active Substance: DULOXETINE HYDROCHLORIDE
     Indication: ANXIETY
     Dosage: 60 MG, 1X/DAY
     Route: 048
  18. TEKTURNA [Concomitant]
     Active Substance: ALISKIREN HEMIFUMARATE
     Indication: BLOOD PRESSURE ABNORMAL
     Dosage: 300 MG, 1X/DAY
     Route: 048
  19. AMITRIPTYLINE HCL [Concomitant]
     Active Substance: AMITRIPTYLINE
     Indication: ANXIETY
     Dosage: 50 MG, 1X/DAY
     Route: 048
     Dates: start: 2006
  20. CYCLOBENZAPRINE HCL [Concomitant]
     Active Substance: CYCLOBENZAPRINE HYDROCHLORIDE
     Indication: MUSCLE SPASMS
     Dosage: 10 MG, 3X/DAY
     Route: 048

REACTIONS (15)
  - Peripheral swelling [Unknown]
  - Headache [Unknown]
  - Type 2 diabetes mellitus [Not Recovered/Not Resolved]
  - Drug hypersensitivity [Unknown]
  - Anaemia [Unknown]
  - Cyst [Unknown]
  - Weight increased [Unknown]
  - Product use in unapproved indication [Unknown]
  - Cerebral disorder [Unknown]
  - Abdominal distension [Unknown]
  - Viral infection [Unknown]
  - Euphoric mood [Unknown]
  - Swollen tongue [Unknown]
  - Off label use [Unknown]
  - Diabetic neuropathy [Unknown]

NARRATIVE: CASE EVENT DATE: 2006
